FAERS Safety Report 13139767 (Version 4)
Quarter: 2017Q1

REPORT INFORMATION
  Report Type: Spontaneous
  Country: US (occurrence: US)
  Receive Date: 20170123
  Receipt Date: 20170221
  Transmission Date: 20170428
  Serious: Yes (Hospitalization, Other)
  Sender: FDA-Public Use
  Company Number: US-PFIZER INC-2017026859

PATIENT
  Sex: Female

DRUGS (2)
  1. CYTOXAN [Suspect]
     Active Substance: CYCLOPHOSPHAMIDE
     Indication: CHEMOTHERAPY
     Dosage: UNK
     Route: 042
     Dates: start: 20160520
  2. ADRIAMYCIN [Suspect]
     Active Substance: DOXORUBICIN HYDROCHLORIDE
     Indication: BREAST CANCER
     Dosage: UNK
     Route: 042

REACTIONS (13)
  - Second primary malignancy [Unknown]
  - Radiculopathy [Unknown]
  - Spinal disorder [Unknown]
  - Acute lymphocytic leukaemia [Unknown]
  - Proctalgia [Recovering/Resolving]
  - Bone marrow oedema [Unknown]
  - Hypoaesthesia [Not Recovered/Not Resolved]
  - Bone scan abnormal [Unknown]
  - Oedema [Unknown]
  - Spinal fracture [Unknown]
  - Back pain [Recovering/Resolving]
  - Soft tissue disorder [Unknown]
  - Spondylolisthesis [Unknown]

NARRATIVE: CASE EVENT DATE: 201404
